FAERS Safety Report 18996176 (Version 1)
Quarter: 2021Q1

REPORT INFORMATION
  Report Type: Report from Study
  Country: IE (occurrence: IE)
  Receive Date: 20210311
  Receipt Date: 20210311
  Transmission Date: 20210420
  Serious: Yes (Hospitalization)
  Sender: FDA-Public Use
  Company Number: IE-AMGEN-IRLSL2021036652

PATIENT
  Age: 50 Year
  Sex: Female

DRUGS (5)
  1. CODANT [Concomitant]
     Dosage: 30 MILLIGRAM, QID (QDS)
     Route: 050
  2. DEXAMETHASONE. [Concomitant]
     Active Substance: DEXAMETHASONE
     Dosage: 8 MILLIGRAM, BID (BD)
     Route: 050
  3. CODEINE [Concomitant]
     Active Substance: CODEINE
     Dosage: 30 MILLIGRAM, QID (QDS)
     Route: 050
  4. CYCLIZINE [Concomitant]
     Active Substance: CYCLIZINE
     Dosage: 50 MILLIGRAM, TID (TDS)
     Route: 050
  5. NEULASTA [Suspect]
     Active Substance: PEGFILGRASTIM
     Indication: PRODUCT USED FOR UNKNOWN INDICATION
     Dosage: 6 MILLIGRAM, PER CHEMO REGIM
     Route: 058

REACTIONS (1)
  - Muscle spasms [Recovered/Resolved]

NARRATIVE: CASE EVENT DATE: 20210217
